FAERS Safety Report 24887098 (Version 1)
Quarter: 2025Q1

REPORT INFORMATION
  Report Type: Report from Study
  Country: CA (occurrence: CA)
  Receive Date: 20250127
  Receipt Date: 20250127
  Transmission Date: 20250409
  Serious: Yes (Death, Other)
  Sender: ALEXION PHARMACEUTICALS
  Company Number: CA-AstraZeneca-CH-00789000A

PATIENT

DRUGS (5)
  1. FASENRA [Suspect]
     Active Substance: BENRALIZUMAB
     Indication: Asthma
  2. ALBUTEROL [Concomitant]
     Active Substance: ALBUTEROL
     Route: 065
  3. ALVESCO [Concomitant]
     Active Substance: CICLESONIDE
     Route: 065
  4. ACLIDINIUM BROMIDE [Concomitant]
     Active Substance: ACLIDINIUM BROMIDE
     Route: 065
  5. MONTELUKAST [Concomitant]
     Active Substance: MONTELUKAST
     Route: 065

REACTIONS (1)
  - Death [Fatal]
